FAERS Safety Report 5327449-7 (Version None)
Quarter: 2007Q2

REPORT INFORMATION
  Report Type: 
  Country: None (occurrence: None)
  Receive Date: 20070514
  Receipt Date: 20070514
  Transmission Date: 20071010
  Serious: Yes (Hospitalization, Other)
  Sender: FDA-Public Use
  Company Number: None

PATIENT
  Sex: Female
  Weight: 49.8957 kg

DRUGS (1)
  1. FLUTAMIDE [Suspect]
     Indication: ACNE
     Dosage: 125 MG 2X DAILY PO
     Route: 048
     Dates: start: 20051001, end: 20070501

REACTIONS (5)
  - DELUSION [None]
  - DEPRESSION [None]
  - PSYCHOTIC DISORDER [None]
  - SCHIZOPHRENIA [None]
  - THINKING ABNORMAL [None]
